FAERS Safety Report 12490082 (Version 1)
Quarter: 2016Q2

REPORT INFORMATION
  Report Type: Spontaneous
  Country: US (occurrence: US)
  Receive Date: 20160622
  Receipt Date: 20160622
  Transmission Date: 20160815
  Serious: Yes (Other)
  Sender: FDA-Public Use
  Company Number: US-AMGEN-USASP2016011178

PATIENT
  Age: 32 Year
  Sex: Female

DRUGS (2)
  1. ENBREL [Suspect]
     Active Substance: ETANERCEPT
     Indication: PSORIATIC ARTHROPATHY
     Dosage: 50 MG, QWK
     Route: 058
     Dates: start: 2009
  2. FISH OIL [Concomitant]
     Active Substance: FISH OIL
     Dosage: UNK DF, DAILY
     Route: 048
     Dates: start: 20141201

REACTIONS (3)
  - Arrested labour [Recovered/Resolved]
  - Maternal exposure during pregnancy [Recovered/Resolved]
  - Labour induction [Recovered/Resolved]

NARRATIVE: CASE EVENT DATE: 2014
